FAERS Safety Report 7967047-X (Version None)
Quarter: 2011Q4

REPORT INFORMATION
  Report Type: 
  Country: None (occurrence: None)
  Receive Date: 20111209
  Receipt Date: 20111207
  Transmission Date: 20120403
  Serious: No
  Sender: FDA-Public Use
  Company Number: US-PFIZER INC-2011299141

PATIENT
  Sex: Female

DRUGS (3)
  1. LYRICA [Suspect]
     Indication: FIBROMYALGIA
     Dosage: 25 MG, 1X/DAY
  2. LYRICA [Suspect]
     Indication: DEPRESSION
  3. LYRICA [Suspect]
     Indication: ANXIETY

REACTIONS (1)
  - DRUG INEFFECTIVE [None]
